FAERS Safety Report 21183659 (Version 1)
Quarter: 2022Q3

REPORT INFORMATION
  Report Type: Spontaneous
  Country: IT (occurrence: IT)
  Receive Date: 20220808
  Receipt Date: 20220808
  Transmission Date: 20221027
  Serious: Yes (Life-Threatening, Hospitalization, Other)
  Sender: FDA-Public Use
  Company Number: IT-HETERO-HET2022IT01869

PATIENT
  Sex: Female

DRUGS (1)
  1. ESCITALOPRAM [Suspect]
     Active Substance: ESCITALOPRAM OXALATE
     Indication: Major depression
     Dosage: 10 MG, QD
     Route: 064

REACTIONS (14)
  - Right ventricular dilatation [Recovered/Resolved]
  - Foetal growth restriction [Recovered/Resolved]
  - Neonatal anuria [Recovered/Resolved]
  - Neonatal hypotension [Recovered/Resolved]
  - Neonatal tachycardia [Recovered/Resolved]
  - Foetal distress syndrome [Recovered/Resolved]
  - Ventricular septal defect [Recovered/Resolved]
  - Neonatal respiratory distress syndrome [Recovered/Resolved]
  - Metabolic acidosis [Recovered/Resolved]
  - Cardiovascular disorder [Recovered/Resolved]
  - Newborn persistent pulmonary hypertension [Recovered/Resolved]
  - Haemodynamic instability [Recovered/Resolved]
  - Premature baby [Recovered/Resolved]
  - Foetal exposure during pregnancy [Unknown]
